FAERS Safety Report 9284655 (Version 1)
Quarter: 2013Q2

REPORT INFORMATION
  Report Type: Report from Study
  Country: JP (occurrence: JP)
  Receive Date: 20130513
  Receipt Date: 20130513
  Transmission Date: 20140414
  Serious: Yes (Other)
  Sender: FDA-Public Use
  Company Number: JP-009507513-1305JPN004601

PATIENT
  Age: 58 Year
  Sex: Female

DRUGS (14)
  1. PEGINTRON [Suspect]
     Indication: CHRONIC HEPATITIS C
     Dosage: 0.75 MICROGRAM PER KILOGRAM, QW
     Route: 058
     Dates: start: 20120903, end: 20120909
  2. PEGINTRON [Suspect]
     Dosage: 1.0 MICROGRAM PER KILOGRAM, QW
     Route: 058
     Dates: start: 20120910, end: 20120923
  3. PEGINTRON [Suspect]
     Dosage: 1.5 MICROGRAM PER KILOGRAM, QW
     Route: 058
     Dates: start: 20120924, end: 20130212
  4. REBETOL [Suspect]
     Indication: CHRONIC HEPATITIS C
     Dosage: 600 MG, QD
     Route: 048
     Dates: start: 20120903, end: 20120923
  5. REBETOL [Suspect]
     Dosage: 400 MG, QD
     Route: 048
     Dates: start: 20120924, end: 20120930
  6. REBETOL [Suspect]
     Dosage: 500 MG, QD
     Route: 048
     Dates: start: 20121001, end: 20121028
  7. REBETOL [Suspect]
     Dosage: 400 MG, QD
     Route: 048
     Dates: start: 20121029, end: 20121209
  8. REBETOL [Suspect]
     Dosage: 500 MG, QD
     Route: 048
     Dates: start: 20121210, end: 20130203
  9. REBETOL [Suspect]
     Dosage: 600 MG, QD
     Route: 048
     Dates: start: 20130204, end: 20130218
  10. REBETOL [Suspect]
     Dosage: UNK
  11. TELAVIC [Suspect]
     Indication: CHRONIC HEPATITIS C
     Dosage: 750 MG, QD
     Route: 048
     Dates: start: 20120903, end: 20120904
  12. TELAVIC [Suspect]
     Dosage: 1500MG DAILY
     Route: 048
     Dates: start: 20120905, end: 20120918
  13. TELAVIC [Suspect]
     Dosage: 750 MG, QD
     Route: 048
     Dates: start: 20120919, end: 20121014
  14. TELAVIC [Suspect]
     Dosage: 1500MG DAILY
     Route: 048
     Dates: start: 20121015, end: 20121125

REACTIONS (1)
  - Toxic skin eruption [Recovered/Resolved]
